FAERS Safety Report 17223651 (Version 1)
Quarter: 2019Q4

REPORT INFORMATION
  Report Type: Spontaneous
  Country: US (occurrence: US)
  Receive Date: 20191209
  Receipt Date: 20191209
  Transmission Date: 20200122
  Serious: Yes (Hospitalization)
  Sender: FDA-Public Use
  Company Number: None

PATIENT
  Age: 21 Year
  Sex: Male

DRUGS (5)
  1. TRIKAFTA [Suspect]
     Active Substance: ELEXACAFTOR\IVACAFTOR\TEZACAFTOR
     Indication: CYSTIC FIBROSIS
     Dosage: ?          OTHER FREQUENCY:1 AM + 1 PM;?
     Route: 048
     Dates: start: 20191108
  2. CAYSION [Concomitant]
  3. TOBRAMYCIN NEB SIN [Concomitant]
  4. PULMOZYINE [Concomitant]
  5. CREON [Concomitant]
     Active Substance: PANCRELIPASE AMYLASE\PANCRELIPASE LIPASE\PANCRELIPASE PROTEASE

REACTIONS (2)
  - Respiratory disorder [None]
  - Gastrointestinal disorder [None]

NARRATIVE: CASE EVENT DATE: 20191204
